FAERS Safety Report 21783717 (Version 6)
Quarter: 2023Q4

REPORT INFORMATION
  Report Type: Spontaneous
  Country: US (occurrence: US)
  Receive Date: 20221227
  Receipt Date: 20231211
  Transmission Date: 20240110
  Serious: No
  Sender: FDA-Public Use
  Company Number: US-PFIZER INC-PV202200128706

PATIENT
  Age: 69 Year
  Sex: Male

DRUGS (2)
  1. IBRANCE [Suspect]
     Active Substance: PALBOCICLIB
     Dosage: 125 MG
  2. IBRANCE [Suspect]
     Active Substance: PALBOCICLIB
     Dosage: TAKE DAILY FOR 21 DAYS, THEN 7 DAY REST PERIOD (28 DAY CYCLE)
     Route: 048

REACTIONS (2)
  - Platelet count increased [Unknown]
  - Product dispensing error [Unknown]
